FAERS Safety Report 16814244 (Version 1)
Quarter: 2019Q3

REPORT INFORMATION
  Report Type: Spontaneous
  Country: US (occurrence: US)
  Receive Date: 20190917
  Receipt Date: 20190917
  Transmission Date: 20191005
  Serious: No
  Sender: FDA-Public Use
  Company Number: US-ALLERGAN-1923053US

PATIENT
  Age: 73 Year
  Sex: Female

DRUGS (5)
  1. OTHER MULTIPLE PROTON PUMP INHIBITORS [Concomitant]
     Indication: OESOPHAGEAL ULCER
  2. CARAFATE [Suspect]
     Active Substance: SUCRALFATE
     Indication: EROSIVE OESOPHAGITIS
     Dosage: 1 GRAM TABLET, 2-4 TABLETS PER DAY AS NEEDED
     Route: 048
     Dates: start: 1980
  3. CARAFATE [Suspect]
     Active Substance: SUCRALFATE
     Indication: OESOPHAGEAL PAIN
  4. OTHER MULTIPLE PROTON PUMP INHIBITORS [Concomitant]
     Indication: OESOPHAGEAL PAIN
  5. CARAFATE [Suspect]
     Active Substance: SUCRALFATE
     Indication: OESOPHAGEAL ULCER

REACTIONS (8)
  - Discomfort [Unknown]
  - Drug ineffective [Unknown]
  - Product solubility abnormal [Unknown]
  - Product use issue [Unknown]
  - Off label use [Unknown]
  - Product quality issue [Unknown]
  - Incorrect dose administered [Unknown]
  - Wrong technique in product usage process [Unknown]

NARRATIVE: CASE EVENT DATE: 1980
